FAERS Safety Report 9721968 (Version 1)
Quarter: 2013Q4

REPORT INFORMATION
  Report Type: Spontaneous
  Country: ES (occurrence: ES)
  Receive Date: 20131202
  Receipt Date: 20131202
  Transmission Date: 20140711
  Serious: Yes (Life-Threatening, Other)
  Sender: FDA-Public Use
  Company Number: ES-009507513-1311ESP012643

PATIENT
  Age: 30 Year
  Sex: Female
  Weight: 65 kg

DRUGS (2)
  1. CELESTONE CRONODOSE [Suspect]
     Dosage: 1 ML, UNK
     Route: 030
     Dates: start: 20130819, end: 20130819
  2. MEPIVACAINA CLORIDRATO [Suspect]
     Indication: TENOSYNOVITIS
     Dosage: INJECTION
     Route: 030
     Dates: start: 20130819, end: 20130819

REACTIONS (1)
  - Anaphylactic shock [Recovered/Resolved]
